FAERS Safety Report 8248723-0 (Version None)
Quarter: 2012Q1

REPORT INFORMATION
  Report Type: 
  Country: None (occurrence: None)
  Receive Date: 20120331
  Receipt Date: 20120325
  Transmission Date: 20120608
  Serious: Yes (Hospitalization)
  Sender: FDA-Public Use
  Company Number: PHHY2012BR026611

PATIENT
  Sex: Male

DRUGS (1)
  1. EXFORGE [Suspect]
     Indication: HYPERTENSION
     Dosage: 1 DF(320/5 MG), QD

REACTIONS (7)
  - ABDOMINAL DISCOMFORT [None]
  - HEART RATE INCREASED [None]
  - PYREXIA [None]
  - VIRAL INFECTION [None]
  - TACHYCARDIA [None]
  - MALAISE [None]
  - BLOOD PRESSURE INCREASED [None]
